FAERS Safety Report 6015550-4 (Version None)
Quarter: 2008Q4

REPORT INFORMATION
  Report Type: 
  Country: None (occurrence: None)
  Receive Date: 20081216
  Receipt Date: 20080320
  Transmission Date: 20090506
  Serious: Yes (Other)
  Sender: FDA-Public Use
  Company Number: HQWYE418102FEB07

PATIENT
  Age: 32 Year
  Sex: Female
  Weight: 81.72 kg

DRUGS (7)
  1. EFFEXOR XR [Suspect]
     Indication: BORDERLINE PERSONALITY DISORDER
     Dosage: 300 MG 1X PER 1 DAY, ORAL ; 450 MG 1X PER 1 DAY
     Route: 048
     Dates: start: 20060901, end: 20061206
  2. EFFEXOR XR [Suspect]
     Indication: BORDERLINE PERSONALITY DISORDER
     Dosage: 300 MG 1X PER 1 DAY, ORAL ; 450 MG 1X PER 1 DAY
     Route: 048
     Dates: start: 20061207
  3. PROVIGIL [Concomitant]
  4. WELLBUTRIN [Concomitant]
  5. SOMA [Concomitant]
  6. ZOFRAN [Concomitant]
  7. BACLOFEN [Concomitant]

REACTIONS (1)
  - DRUG EXPOSURE DURING PREGNANCY [None]
